FAERS Safety Report 7088586-2 (Version None)
Quarter: 2010Q4

REPORT INFORMATION
  Report Type: 
  Country: None (occurrence: None)
  Receive Date: 20101108
  Receipt Date: 20101103
  Transmission Date: 20110411
  Serious: Yes (Death)
  Sender: FDA-Public Use
  Company Number: PT-CELGENEUS-130-21880-10110342

PATIENT
  Sex: Female

DRUGS (9)
  1. REVLIMID [Suspect]
     Route: 048
     Dates: start: 20100604
  2. SIMVASTATIN [Concomitant]
     Indication: DYSLIPIDAEMIA
     Route: 065
  3. RAMIPRIL [Concomitant]
     Route: 065
  4. ALPRAZOLAM [Concomitant]
     Indication: INSOMNIA
     Route: 065
  5. FOLIFER [Concomitant]
     Indication: IRON DEFICIENCY
     Route: 065
  6. ALLOPURINOL [Concomitant]
     Indication: HYPERURICAEMIA
     Route: 065
  7. PANTOPRAZOLE [Concomitant]
     Route: 065
  8. MAGNESIUM [Concomitant]
     Route: 065
  9. AMIODARONE HCL [Concomitant]
     Route: 065

REACTIONS (1)
  - DEATH [None]
